FAERS Safety Report 8682498 (Version 2)
Quarter: 2013Q3

REPORT INFORMATION
  Report Type: Report from Study
  Country: US (occurrence: US)
  Receive Date: 20120725
  Receipt Date: 20130821
  Transmission Date: 20140515
  Serious: No
  Sender: FDA-Public Use
  Company Number: US-ELI_LILLY_AND_COMPANY-US201206009264

PATIENT
  Sex: Female

DRUGS (4)
  1. TERIPARATIDE [Suspect]
     Indication: OSTEOPOROSIS
     Dosage: 20 UG, QD
     Route: 065
     Dates: start: 201110
  2. TERIPARATIDE [Suspect]
     Dosage: 20 UG, QD
     Route: 065
     Dates: start: 201110
  3. TERIPARATIDE [Suspect]
     Dosage: 20 UG, QD
     Dates: start: 201110
  4. TERIPARATIDE [Suspect]
     Dosage: UNK, QD

REACTIONS (5)
  - Abdominal discomfort [Unknown]
  - Injection site bruising [Not Recovered/Not Resolved]
  - Pain [Unknown]
  - Discomfort [Unknown]
  - Injection site haemorrhage [Unknown]
